FAERS Safety Report 14260315 (Version 2)
Quarter: 2017Q4

REPORT INFORMATION
  Report Type: Spontaneous
  Country: CA (occurrence: CA)
  Receive Date: 20171207
  Receipt Date: 20171222
  Transmission Date: 20180321
  Serious: Yes (Hospitalization)
  Sender: FDA-Public Use
  Company Number: CA-SA-2017SA240976

PATIENT
  Age: 38 Year
  Sex: Male

DRUGS (1)
  1. ALEMTUZUMAB [Suspect]
     Active Substance: ALEMTUZUMAB
     Indication: MULTIPLE SCLEROSIS
     Route: 065

REACTIONS (9)
  - Anti-glomerular basement membrane antibody [Unknown]
  - Goodpasture^s syndrome [Unknown]
  - Decreased appetite [Unknown]
  - Haemoglobin urine [Unknown]
  - Vomiting [Unknown]
  - Pyrexia [Unknown]
  - Blood creatinine increased [Unknown]
  - Urine output decreased [Unknown]
  - Haemoptysis [Recovered/Resolved]
